FAERS Safety Report 9037962 (Version 1)
Quarter: 2013Q1

REPORT INFORMATION
  Report Type: Spontaneous
  Country: DE (occurrence: DE)
  Receive Date: 20130129
  Receipt Date: 20130129
  Transmission Date: 20140127
  Serious: Yes (Other)
  Sender: FDA-Public Use
  Company Number: DE-JNJFOC-20130111884

PATIENT
  Sex: 0

DRUGS (2)
  1. USTEKINUMAB [Suspect]
     Indication: PSORIASIS
     Route: 058
  2. METHOTREXATE [Suspect]
     Indication: PSORIASIS
     Route: 065

REACTIONS (1)
  - Acute hepatitis B [Unknown]
